FAERS Safety Report 10557760 (Version 1)
Quarter: 2014Q4

REPORT INFORMATION
  Report Type: Spontaneous
  Country: US (occurrence: US)
  Receive Date: 20141031
  Receipt Date: 20141031
  Transmission Date: 20150529
  Serious: No
  Sender: FDA-Public Use
  Company Number: US-BAYER-2014-161048

PATIENT

DRUGS (2)
  1. STIVARGA [Suspect]
     Active Substance: REGORAFENIB
  2. STIVARGA [Suspect]
     Active Substance: REGORAFENIB
     Dosage: UNK

REACTIONS (1)
  - Influenza like illness [None]
